FAERS Safety Report 8612708-2 (Version None)
Quarter: 2012Q3

REPORT INFORMATION
  Report Type: 
  Country: None (occurrence: None)
  Receive Date: 20120822
  Receipt Date: 20120217
  Transmission Date: 20120928
  Serious: No
  Sender: FDA-Public Use
  Company Number: US-ASTRAZENECA-2011SE49433

PATIENT
  Age: 59 Year
  Sex: Male
  Weight: 65.8 kg

DRUGS (6)
  1. ATRODENT HFA INHALATION [Concomitant]
     Dosage: TWO PUFFS TWO TIMES A DAY
     Route: 055
  2. VENTOLIN HFA INH WDOS CTR [Concomitant]
     Dosage: TWO PUFFS PRN
     Route: 055
  3. SYMBICORT [Suspect]
     Dosage: 160 MCG/4.5 MCG TWO PUFFS TWO TIMES A DAY
     Route: 055
     Dates: start: 20100101
  4. PRILOSEC [Concomitant]
     Indication: GASTROOESOPHAGEAL REFLUX DISEASE
     Dosage: ONCE
     Route: 048
  5. METOPROL TAR [Concomitant]
     Indication: BLOOD PRESSURE ABNORMAL
     Route: 048
  6. NEXIUM [Concomitant]
     Route: 048

REACTIONS (4)
  - DYSPNOEA [None]
  - GASTROOESOPHAGEAL REFLUX DISEASE [None]
  - CIRCUMSTANCE OR INFORMATION CAPABLE OF LEADING TO MEDICATION ERROR [None]
  - CHRONIC OBSTRUCTIVE PULMONARY DISEASE [None]
